FAERS Safety Report 5484966-7 (Version None)
Quarter: 2007Q4

REPORT INFORMATION
  Report Type: 
  Country: None (occurrence: None)
  Receive Date: 20071010
  Receipt Date: 20060901
  Transmission Date: 20080405
  Serious: Yes (Hospitalization)
  Sender: FDA-Public Use
  Company Number: 000#5#2006-00367

PATIENT
  Age: 68 Year
  Sex: Male

DRUGS (5)
  1. ROTIGOTINE (DOSE UNKNOWN), PATCH (SILICONE) (ROTIGOTINE) [Suspect]
     Indication: PARKINSON'S DISEASE
     Dosage: TRANSDERMAL
     Route: 062
     Dates: start: 20041207
  2. CARBIDOPA (CARBIDOPA) [Concomitant]
  3. LEVODOPA (LEVODOPA) [Concomitant]
  4. ACETAMINOPHEN [Concomitant]
  5. AMITRIPTYLINE HCL [Concomitant]

REACTIONS (10)
  - ABNORMAL BEHAVIOUR [None]
  - ABSCESS [None]
  - AGITATION [None]
  - CONDITION AGGRAVATED [None]
  - DYSKINESIA [None]
  - FALL [None]
  - GAMBLING [None]
  - HALLUCINATION, VISUAL [None]
  - INSOMNIA [None]
  - JOINT INJURY [None]
